FAERS Safety Report 12616059 (Version 3)
Quarter: 2016Q3

REPORT INFORMATION
  Report Type: Spontaneous
  Country: FR (occurrence: FR)
  Receive Date: 20160802
  Receipt Date: 20160906
  Transmission Date: 20161109
  Serious: Yes (Hospitalization)
  Sender: FDA-Public Use
  Company Number: FR-GUERBET LLC-1055784

PATIENT
  Age: 67 Year
  Sex: Female

DRUGS (6)
  1. DROPERIDOL. [Suspect]
     Active Substance: DROPERIDOL
     Route: 042
     Dates: start: 20150217
  2. DOTAREM [Suspect]
     Active Substance: GADOTERATE MEGLUMINE
     Indication: IMAGING PROCEDURE
     Route: 042
     Dates: start: 20150217
  3. LOVENOX [Suspect]
     Active Substance: ENOXAPARIN SODIUM
     Route: 058
     Dates: start: 20150217
  4. CEFOXITIN [Suspect]
     Active Substance: CEFOXITIN SODIUM
     Route: 042
     Dates: start: 20150217
  5. PARACETAMOL [Suspect]
     Active Substance: ACETAMINOPHEN
     Route: 042
     Dates: start: 20150217
  6. ACUPAN [Suspect]
     Active Substance: NEFOPAM HYDROCHLORIDE
     Route: 042
     Dates: start: 20150217

REACTIONS (6)
  - Chest discomfort [Recovered/Resolved]
  - Lip oedema [Recovered/Resolved]
  - Dyspnoea [Recovered/Resolved]
  - Hypotension [Recovered/Resolved]
  - Rash maculo-papular [Recovered/Resolved]
  - Urticaria [Recovered/Resolved]

NARRATIVE: CASE EVENT DATE: 20150217
